FAERS Safety Report 20903282 (Version 1)
Quarter: 2022Q2

REPORT INFORMATION
  Report Type: Report from Study
  Country: US (occurrence: US)
  Receive Date: 20220601
  Receipt Date: 20220601
  Transmission Date: 20220720
  Serious: No
  Sender: FDA-Public Use
  Company Number: US-INCYTE CORPORATION-2022IN003908

PATIENT

DRUGS (5)
  1. JAKAFI [Suspect]
     Active Substance: RUXOLITINIB
     Indication: Myelofibrosis
     Dosage: 10 MILLIGRAM, BID
     Route: 065
     Dates: start: 20150101, end: 20200615
  2. CARVEDILOL [Concomitant]
     Active Substance: CARVEDILOL
     Indication: Coronary artery disease
     Dosage: 12.5 MILLIGRAM, QOD
     Route: 065
     Dates: start: 1999
  3. CARVEDILOL [Concomitant]
     Active Substance: CARVEDILOL
     Indication: Coronary artery bypass
  4. RANITIDINE [Concomitant]
     Active Substance: RANITIDINE
     Indication: Gastrooesophageal reflux disease
     Dosage: 150 MILLIGRAM, QD
     Route: 065
     Dates: start: 1975
  5. LOSARTAN [Concomitant]
     Active Substance: LOSARTAN
     Indication: Hypertension
     Dosage: 25 MILLIGRAM
     Route: 065
     Dates: start: 20160623

REACTIONS (1)
  - Pruritus [Recovered/Resolved]

NARRATIVE: CASE EVENT DATE: 20200625
